FAERS Safety Report 16399396 (Version 2)
Quarter: 2019Q3

REPORT INFORMATION
  Report Type: Spontaneous
  Country: US (occurrence: US)
  Receive Date: 20190606
  Receipt Date: 20190709
  Transmission Date: 20191004
  Serious: Yes (Death, Other)
  Sender: FDA-Public Use
  Company Number: US-BRACCO-2019US02717

PATIENT
  Age: 52 Year
  Sex: Male

DRUGS (2)
  1. GASTROGRAFIN [Concomitant]
     Active Substance: DIATRIZOATE MEGLUMINE\DIATRIZOATE SODIUM
     Indication: COMPUTERISED TOMOGRAM
     Dosage: 30 ML, SINGLE
     Route: 048
     Dates: start: 20190528, end: 20190528
  2. ISOVUE 370 [Suspect]
     Active Substance: IOPAMIDOL
     Indication: COMPUTERISED TOMOGRAM
     Dosage: 80 ML, SINGLE
     Route: 042
     Dates: start: 20190528, end: 20190528

REACTIONS (1)
  - Anaphylactic reaction [Fatal]

NARRATIVE: CASE EVENT DATE: 20190528
